FAERS Safety Report 9002391 (Version 1)
Quarter: 2012Q4

REPORT INFORMATION
  Report Type: Spontaneous
  Country: GB (occurrence: None)
  Receive Date: 20121203
  Receipt Date: 20121203
  Transmission Date: 20130627
  Serious: Yes (Other)
  Sender: FDA-Public Use
  Company Number: 219554

PATIENT
  Age: 55 Year
  Sex: Male

DRUGS (3)
  1. INNOHEP (TINZAPARIN SODIUM) [Suspect]
     Indication: DRUG USE FOR UNKNOWN INDICATION
     Dates: start: 20121024, end: 20121031
  2. CO-CODAMOL (PANADEINE CO) [Concomitant]
  3. DICLOFENAC (DICLOFENAC) [Concomitant]

REACTIONS (4)
  - Balance disorder [None]
  - Tremor [None]
  - Feeling drunk [None]
  - Metastasis [None]
